FAERS Safety Report 14740725 (Version 1)
Quarter: 2018Q2

REPORT INFORMATION
  Report Type: Spontaneous
  Country: GB (occurrence: GB)
  Receive Date: 20180410
  Receipt Date: 20180410
  Transmission Date: 20180711
  Serious: Yes (Other)
  Sender: FDA-Public Use
  Company Number: GB-MYLANLABS-2018M1022086

PATIENT
  Age: 79 Year
  Sex: Female

DRUGS (8)
  1. LORAZEPAM. [Concomitant]
     Active Substance: LORAZEPAM
     Indication: VASCULAR DEMENTIA
     Route: 065
  2. LORAZEPAM. [Concomitant]
     Active Substance: LORAZEPAM
     Indication: MIXED DEMENTIA
  3. QUETIAPINE. [Suspect]
     Active Substance: QUETIAPINE
     Indication: MIXED DEMENTIA
     Route: 065
  4. SERTRALINE [Concomitant]
     Active Substance: SERTRALINE HYDROCHLORIDE
     Indication: VASCULAR DEMENTIA
     Route: 065
  5. QUETIAPINE. [Suspect]
     Active Substance: QUETIAPINE
     Indication: VASCULAR DEMENTIA
  6. MEMANTINE. [Suspect]
     Active Substance: MEMANTINE
     Indication: VASCULAR DEMENTIA
     Dosage: 5 MG, QD
     Route: 065
  7. MEMANTINE. [Suspect]
     Active Substance: MEMANTINE
     Indication: MIXED DEMENTIA
     Route: 065
  8. SERTRALINE [Concomitant]
     Active Substance: SERTRALINE HYDROCHLORIDE
     Indication: MIXED DEMENTIA

REACTIONS (1)
  - Bradycardia [Recovered/Resolved]
